FAERS Safety Report 8113742-1 (Version None)
Quarter: 2012Q1

REPORT INFORMATION
  Report Type: 
  Country: None (occurrence: None)
  Receive Date: 20120203
  Receipt Date: 20120121
  Transmission Date: 20120608
  Serious: Yes (Hospitalization, Other)
  Sender: FDA-Public Use
  Company Number: AR-AMGEN-ARGSP2011068987

PATIENT
  Age: 36 Year
  Sex: Female
  Weight: 57 kg

DRUGS (6)
  1. ENBREL [Suspect]
     Dosage: 50 MG, WEEKLY, USING PRE-FILLED SYRINGES
  2. ENBREL [Suspect]
     Dosage: 25 MG, 2X/WEEK
     Route: 058
     Dates: start: 20060601
  3. ENBREL [Suspect]
     Dosage: 50 MG, WEEKLY, PRE-FILLED PEN
  4. METHOTREXATE [Concomitant]
     Dosage: UNK
  5. ENBREL [Suspect]
     Dosage: 50 MG, EVERY 10 DAYS, PRE-FILLED PEN
     Dates: start: 20110101, end: 20111212
  6. ENBREL [Suspect]
     Indication: RHEUMATOID ARTHRITIS
     Dosage: UNK
     Dates: start: 20060101

REACTIONS (2)
  - GLIOMA [None]
  - TUBERCULOMA OF CENTRAL NERVOUS SYSTEM [None]
